FAERS Safety Report 15087530 (Version 1)
Quarter: 2018Q2

REPORT INFORMATION
  Report Type: Spontaneous
  Country: TH (occurrence: TH)
  Receive Date: 20180628
  Receipt Date: 20180628
  Transmission Date: 20180711
  Serious: Yes (Other)
  Sender: FDA-Public Use
  Company Number: TH-MACLEODS PHARMACEUTICALS US LTD-MAC2018014363

PATIENT

DRUGS (5)
  1. ISONIAZID. [Concomitant]
     Active Substance: ISONIAZID
     Indication: ANTIBIOTIC PROPHYLAXIS
     Dosage: 300 MILLIGRAM, QD
     Route: 065
  2. ETHAMBUTOL [Suspect]
     Active Substance: ETHAMBUTOL HYDROCHLORIDE
     Indication: ANTIBIOTIC PROPHYLAXIS
     Dosage: 800 MILLIGRAM, QD
     Route: 065
  3. CLARITHROMYCIN. [Concomitant]
     Active Substance: CLARITHROMYCIN
     Indication: MYCOBACTERIAL INFECTION
     Dosage: 1000 MILLIGRAM, QD
     Route: 065
  4. RIFAMPIN. [Concomitant]
     Active Substance: RIFAMPIN
     Indication: ANTIBIOTIC PROPHYLAXIS
     Dosage: 450 MILLIGRAM, QD
     Route: 065
  5. LEVOFLOXACIN 500 MG [Suspect]
     Active Substance: LEVOFLOXACIN
     Indication: MYCOBACTERIAL INFECTION
     Dosage: 500 MILLIGRAM, QD
     Route: 065

REACTIONS (2)
  - Tendonitis [Unknown]
  - Toxic optic neuropathy [Unknown]
